FAERS Safety Report 12446943 (Version 1)
Quarter: 2016Q2

REPORT INFORMATION
  Report Type: Spontaneous
  Country: GB (occurrence: GB)
  Receive Date: 20160608
  Receipt Date: 20160608
  Transmission Date: 20160815
  Serious: Yes (Hospitalization)
  Sender: FDA-Public Use
  Company Number: GB-WATSON-2016-11451

PATIENT
  Age: 68 Year
  Sex: Male
  Weight: 70.76 kg

DRUGS (1)
  1. SIMVASTATIN (UNKNOWN) [Suspect]
     Active Substance: SIMVASTATIN
     Indication: BLOOD CHOLESTEROL INCREASED
     Dosage: UNK
     Route: 048

REACTIONS (4)
  - Syncope [Recovered/Resolved]
  - Rash [Recovered/Resolved]
  - Muscular weakness [Recovered/Resolved]
  - Amnesia [Recovered/Resolved with Sequelae]
